FAERS Safety Report 24217727 (Version 1)
Quarter: 2024Q3

REPORT INFORMATION
  Report Type: Report from Study
  Country: CN (occurrence: CN)
  Receive Date: 20240816
  Receipt Date: 20240816
  Transmission Date: 20241016
  Serious: Yes (Hospitalization, Other)
  Sender: SANOFI AVENTIS
  Company Number: CN-SA-SAC20240812000694

PATIENT
  Age: 49 Year
  Sex: Female

DRUGS (30)
  1. OXALIPLATIN [Suspect]
     Active Substance: OXALIPLATIN
     Indication: Gastric cancer
     Dosage: 218.4 MG
     Route: 042
     Dates: start: 20180329, end: 20180329
  2. OXALIPLATIN [Suspect]
     Active Substance: OXALIPLATIN
     Dosage: 217.1 MG
     Route: 042
     Dates: start: 20180419, end: 20180419
  3. OXALIPLATIN [Suspect]
     Active Substance: OXALIPLATIN
     Dosage: 130 MG/M2, Q3W
     Route: 042
     Dates: start: 20180329, end: 20180329
  4. OXALIPLATIN [Suspect]
     Active Substance: OXALIPLATIN
     Dosage: 97.5  MG
     Route: 042
     Dates: start: 20180625, end: 20180625
  5. OXALIPLATIN [Suspect]
     Active Substance: OXALIPLATIN
     Dosage: 65 MG/M2
     Dates: start: 20181031
  6. OXALIPLATIN [Suspect]
     Active Substance: OXALIPLATIN
     Dosage: 65 MG/M2
     Dates: start: 20190103
  7. CAPECITABINE [Suspect]
     Active Substance: CAPECITABINE
     Indication: Gastric cancer
     Dosage: 1650 MG, BID; DAY 1-14
     Route: 048
     Dates: start: 20180329, end: 20180502
  8. CAPECITABINE [Suspect]
     Active Substance: CAPECITABINE
     Dosage: 1000  MG
     Dates: start: 20181214
  9. CAPECITABINE [Suspect]
     Active Substance: CAPECITABINE
     Dosage: 65 MG/M2
     Route: 048
     Dates: start: 20190103
  10. CAPECITABINE [Suspect]
     Active Substance: CAPECITABINE
     Dosage: 97.5 MG
     Route: 048
     Dates: start: 20180531
  11. CAPECITABINE [Suspect]
     Active Substance: CAPECITABINE
     Dosage: 97.5 MG
     Route: 048
     Dates: start: 20180720
  12. CAPECITABINE [Suspect]
     Active Substance: CAPECITABINE
     Dosage: 65 MG/M2
     Route: 048
     Dates: start: 20181031
  13. NIVOLUMAB [Suspect]
     Active Substance: NIVOLUMAB
     Indication: Gastric cancer
     Dosage: 360 MG
     Route: 042
     Dates: start: 20180329, end: 20180329
  14. NIVOLUMAB [Suspect]
     Active Substance: NIVOLUMAB
     Dosage: 97.5 MG
     Route: 042
     Dates: start: 20180531
  15. NIVOLUMAB [Suspect]
     Active Substance: NIVOLUMAB
     Dosage: 97.5 MG
     Route: 042
     Dates: start: 20180625
  16. NIVOLUMAB [Suspect]
     Active Substance: NIVOLUMAB
     Dosage: 97.5 MG
     Route: 042
     Dates: start: 20180720
  17. NIVOLUMAB [Suspect]
     Active Substance: NIVOLUMAB
     Dosage: UNK
     Route: 042
     Dates: start: 20180917
  18. NIVOLUMAB [Suspect]
     Active Substance: NIVOLUMAB
     Dosage: 65 MG/M2
     Route: 042
     Dates: start: 20181031
  19. NIVOLUMAB [Suspect]
     Active Substance: NIVOLUMAB
     Dosage: 65 MG/M2
     Route: 042
     Dates: start: 20181214
  20. NIVOLUMAB [Suspect]
     Active Substance: NIVOLUMAB
     Dosage: 65 MG/M2
     Route: 042
     Dates: start: 20190103
  21. NIVOLUMAB [Suspect]
     Active Substance: NIVOLUMAB
     Dosage: UNK MG/M2
     Route: 042
     Dates: start: 20190517
  22. SOLU-MEDROL [Concomitant]
     Active Substance: METHYLPREDNISOLONE SODIUM SUCCINATE
     Dosage: 100 MG, QD
     Route: 042
  23. SOLU-MEDROL [Concomitant]
     Active Substance: METHYLPREDNISOLONE SODIUM SUCCINATE
     Dosage: 50 MG
     Route: 042
     Dates: start: 20190124
  24. SOLU-MEDROL [Concomitant]
     Active Substance: METHYLPREDNISOLONE SODIUM SUCCINATE
     Dosage: 80 MG, QD
     Route: 042
     Dates: start: 20190812
  25. SOLU-MEDROL [Concomitant]
     Active Substance: METHYLPREDNISOLONE SODIUM SUCCINATE
     Dosage: 40 MG, QD
     Route: 042
     Dates: start: 20190812, end: 20190813
  26. SOLU-MEDROL [Concomitant]
     Active Substance: METHYLPREDNISOLONE SODIUM SUCCINATE
     Dosage: 30 MG, QD
     Route: 042
     Dates: start: 20190814, end: 20190817
  27. PIPERACILLIN AND TAZOBACTAM [Concomitant]
     Active Substance: PIPERACILLIN SODIUM\TAZOBACTAM SODIUM
     Dosage: 4.5 MG, QD
     Route: 042
  28. PANTOPRAZOLE SODIUM [Concomitant]
     Active Substance: PANTOPRAZOLE SODIUM
     Dosage: 40 MG, QD
     Route: 042
  29. AMBROXOL HYDROCHLORIDE [Concomitant]
     Active Substance: AMBROXOL HYDROCHLORIDE
     Dosage: UNK
  30. PREDNISONE [Concomitant]
     Active Substance: PREDNISONE
     Dosage: 10 MG, TID
     Route: 048
     Dates: start: 20190818

REACTIONS (3)
  - Neutropenia [Recovered/Resolved]
  - Pneumonitis [Recovered/Resolved]
  - Pneumonitis [Recovered/Resolved with Sequelae]

NARRATIVE: CASE EVENT DATE: 20180509
